FAERS Safety Report 7495346-7 (Version None)
Quarter: 2011Q2

REPORT INFORMATION
  Report Type: 
  Country: None (occurrence: None)
  Receive Date: 20110523
  Receipt Date: 20110512
  Transmission Date: 20111010
  Serious: Yes (Hospitalization, Other)
  Sender: FDA-Public Use
  Company Number: US-BIOGENIDEC-2011BI014819

PATIENT
  Age: 54 Year
  Sex: Female

DRUGS (17)
  1. FLUCONAZOLE [Concomitant]
     Route: 048
  2. TOPROL-XL [Concomitant]
     Route: 048
  3. ASPIRIN [Concomitant]
     Route: 048
  4. LISINOPRIL [Concomitant]
  5. LOVASTATIN [Concomitant]
     Route: 048
  6. FLUVOXAMINE [Concomitant]
     Route: 048
  7. CLONAZEPAM [Concomitant]
     Route: 048
  8. AVONEX [Suspect]
     Indication: MULTIPLE SCLEROSIS
     Route: 030
  9. GLIMEPIRIDE [Concomitant]
  10. FAMOTIDINE [Concomitant]
     Route: 048
  11. AVONEX [Suspect]
     Route: 030
  12. DIURETICS (NOS) [Concomitant]
  13. CLONIDINE [Concomitant]
     Route: 048
  14. PROVIGIL [Concomitant]
     Route: 048
  15. SOMA [Concomitant]
     Route: 048
  16. DIPYRIDAMOLE [Concomitant]
     Route: 048
  17. PROMETHAZINE [Concomitant]
     Route: 048

REACTIONS (9)
  - RENAL FAILURE ACUTE [None]
  - INFLUENZA [None]
  - CONSTIPATION [None]
  - GASTROENTERITIS [None]
  - TACHYCARDIA [None]
  - HYPOTENSION [None]
  - HYPOGLYCAEMIA [None]
  - DEHYDRATION [None]
  - ANAEMIA [None]
